FAERS Safety Report 7833809-2 (Version None)
Quarter: 2011Q4

REPORT INFORMATION
  Report Type: 
  Country: None (occurrence: None)
  Receive Date: 20111024
  Receipt Date: 20111014
  Transmission Date: 20120403
  Serious: Yes (Hospitalization)
  Sender: FDA-Public Use
  Company Number: US-GLAXOSMITHKLINE-A0879882A

PATIENT
  Sex: Female
  Weight: 95.9 kg

DRUGS (2)
  1. AVANDIA [Suspect]
     Indication: TYPE 2 DIABETES MELLITUS
     Route: 048
     Dates: end: 20070819
  2. AVANDAMET [Suspect]
     Indication: TYPE 2 DIABETES MELLITUS
     Route: 048
     Dates: start: 20060331

REACTIONS (6)
  - PULMONARY HYPERTENSION [None]
  - PALPITATIONS [None]
  - CARDIAC FAILURE CONGESTIVE [None]
  - HYPOTENSION [None]
  - RESPIRATORY DISORDER [None]
  - CARDIAC DISORDER [None]
